FAERS Safety Report 18991108 (Version 1)
Quarter: 2021Q1

REPORT INFORMATION
  Report Type: Report from Study
  Country: CA (occurrence: CA)
  Receive Date: 20210310
  Receipt Date: 20210310
  Transmission Date: 20210420
  Serious: Yes (Other)
  Sender: FDA-Public Use
  Company Number: CA-TAKEDA-2021TUS013301

PATIENT
  Age: 80 Year
  Sex: Female

DRUGS (4)
  1. FERROUS SULFATE. [Concomitant]
     Active Substance: FERROUS SULFATE
     Dosage: 300 MILLIGRAM, BID
     Route: 048
  2. LAX [BISACODYL] [Concomitant]
     Dosage: UNK UNK, QD
  3. VEDOLIZUMAB [Suspect]
     Active Substance: VEDOLIZUMAB
     Indication: CROHN^S DISEASE
     Dosage: 300 MILLIGRAM
     Route: 042
     Dates: start: 20170306
  4. VEDOLIZUMAB [Suspect]
     Active Substance: VEDOLIZUMAB
     Dosage: 300 MILLIGRAM, Q4WEEKS
     Route: 042
     Dates: start: 20180516

REACTIONS (2)
  - Clostridium difficile infection [Unknown]
  - Off label use [Unknown]

NARRATIVE: CASE EVENT DATE: 20180516
